FAERS Safety Report 5772553-2 (Version None)
Quarter: 2008Q2

REPORT INFORMATION
  Report Type: 
  Country: None (occurrence: None)
  Receive Date: 20080613
  Receipt Date: 20080208
  Transmission Date: 20081010
  Serious: Yes (Death)
  Sender: FDA-Public Use
  Company Number: CA-ROCHE-567976

PATIENT

DRUGS (3)
  1. PEGASYS [Suspect]
     Indication: HEPATITIS C VIRUS
     Route: 065
  2. INTERFERON ALFA [Suspect]
     Indication: HEPATITIS C VIRUS
     Route: 065
  3. RIBAVIRIN [Suspect]
     Indication: HEPATITIS C VIRUS
     Route: 065

REACTIONS (1)
  - DEATH [None]
